FAERS Safety Report 14293903 (Version 1)
Quarter: 2017Q4

REPORT INFORMATION
  Report Type: Spontaneous
  Country: IT (occurrence: IT)
  Receive Date: 20171216
  Receipt Date: 20171216
  Transmission Date: 20180321
  Serious: Yes (Hospitalization)
  Sender: FDA-Public Use
  Company Number: IT-CIPLA LTD.-2017IT24037

PATIENT

DRUGS (8)
  1. LEVOFLOXACIN. [Suspect]
     Active Substance: LEVOFLOXACIN
     Indication: KLEBSIELLA INFECTION
     Dosage: 1 DF, QD
     Route: 048
     Dates: start: 20171015, end: 20171019
  2. LASIX 25 MG COMPRESSE [Concomitant]
     Dosage: 1 DF, UNK
     Route: 048
  3. ZOLOFT COMPRESSE RIVESTITE CON FILM 50 MG [Concomitant]
     Dosage: 1 DF, UNK
     Route: 048
  4. PERIDON 10 MG COMPRESSE RIVESTITE CON FILM [Concomitant]
     Dosage: 2 DF, UNK
     Route: 048
  5. RAMIPRIL. [Concomitant]
     Active Substance: RAMIPRIL
     Dosage: 2.5 MG, UNK
     Route: 048
  6. PANTORC 40 MG COMPRESSE GASTRORESISTENTI [Concomitant]
     Dosage: 1 DF, UNK
     Route: 048
  7. BISOPROLOL HEMIFUMARATE [Concomitant]
     Active Substance: BISOPROLOL FUMARATE
     Dosage: 1.25 MG, UNK
     Route: 048
  8. LERCADIP 10 MG COMPRESSE RIVESTITE CON FILM [Concomitant]
     Dosage: 1 DF, UNK
     Route: 048

REACTIONS (1)
  - Epilepsy [Recovered/Resolved]

NARRATIVE: CASE EVENT DATE: 20171019
